FAERS Safety Report 21769067 (Version 2)
Quarter: 2022Q4

REPORT INFORMATION
  Report Type: Spontaneous
  Country: JP (occurrence: JP)
  Receive Date: 20221222
  Receipt Date: 20221226
  Transmission Date: 20230113
  Serious: Yes (Hospitalization, Other)
  Sender: FDA-Public Use
  Company Number: JP-NBI-J202221091BIPI

PATIENT
  Age: 68 Year
  Sex: Female

DRUGS (1)
  1. OFEV [Suspect]
     Active Substance: NINTEDANIB
     Indication: Interstitial lung disease
     Route: 048
     Dates: end: 20221220

REACTIONS (1)
  - Pneumatosis intestinalis [Unknown]

NARRATIVE: CASE EVENT DATE: 20221220
